FAERS Safety Report 12729069 (Version 1)
Quarter: 2016Q3

REPORT INFORMATION
  Report Type: Spontaneous
  Country: US (occurrence: US)
  Receive Date: 20160909
  Receipt Date: 20160909
  Transmission Date: 20161109
  Serious: Yes (Hospitalization)
  Sender: FDA-Public Use
  Company Number: US-GLAXOSMITHKLINE-US2016063752

PATIENT
  Sex: Female

DRUGS (2)
  1. GAS-X ULTRA STRENGTH ANTIGAS SOFTGELS [Suspect]
     Active Substance: DIMETHICONE
     Indication: GASTRITIS
     Dosage: UNK
     Route: 048
  2. GAS-X ULTRA STRENGTH ANTIGAS SOFTGELS [Suspect]
     Active Substance: DIMETHICONE
     Dosage: UNK

REACTIONS (4)
  - Surgery [Unknown]
  - Off label use [Unknown]
  - Product quality issue [Unknown]
  - Visual impairment [Unknown]
